FAERS Safety Report 19251338 (Version 1)
Quarter: 2021Q2

REPORT INFORMATION
  Report Type: Spontaneous
  Country: US (occurrence: US)
  Receive Date: 20210512
  Receipt Date: 20210512
  Transmission Date: 20210717
  Serious: No
  Sender: FDA-Public Use
  Company Number: US-SUNOVION-2021SUN001694

PATIENT
  Age: 38 Year
  Sex: Female

DRUGS (1)
  1. LATUDA [Suspect]
     Active Substance: LURASIDONE HYDROCHLORIDE
     Dosage: 20 MG, QD
     Route: 048

REACTIONS (5)
  - Gastrointestinal disorder [Unknown]
  - Rubber sensitivity [Unknown]
  - Urticaria [Unknown]
  - Treatment noncompliance [Unknown]
  - Mental disorder [Unknown]
